FAERS Safety Report 16197774 (Version 1)
Quarter: 2019Q2

REPORT INFORMATION
  Report Type: Spontaneous
  Country: US (occurrence: US)
  Receive Date: 20190415
  Receipt Date: 20190415
  Transmission Date: 20190711
  Serious: No
  Sender: FDA-Public Use
  Company Number: US-IPSEN BIOPHARMACEUTICALS, INC.-2019-05519

PATIENT
  Age: 55 Year
  Sex: Male

DRUGS (3)
  1. DYSPORT [Suspect]
     Active Substance: ABOBOTULINUMTOXINA
     Indication: SKIN WRINKLING
     Route: 065
     Dates: start: 20190215, end: 20190215
  2. DYSPORT [Suspect]
     Active Substance: ABOBOTULINUMTOXINA
     Indication: SKIN WRINKLING
  3. DYSPORT [Suspect]
     Active Substance: ABOBOTULINUMTOXINA
     Indication: OFF LABEL USE

REACTIONS (10)
  - Oropharyngeal discomfort [Unknown]
  - Dyspnoea [Not Recovered/Not Resolved]
  - Sensation of foreign body [Not Recovered/Not Resolved]
  - Fatigue [Unknown]
  - Wheezing [Recovering/Resolving]
  - Off label use [Unknown]
  - Dizziness [Unknown]
  - Headache [Unknown]
  - Drooling [Unknown]
  - Speech disorder [Unknown]

NARRATIVE: CASE EVENT DATE: 2019
